FAERS Safety Report 4583595-7 (Version None)
Quarter: 2005Q1

REPORT INFORMATION
  Report Type: 
  Country: None (occurrence: None)
  Receive Date: 20050211
  Receipt Date: 20050131
  Transmission Date: 20050727
  Serious: Yes (Hospitalization, Other)
  Sender: FDA-Public Use
  Company Number: 2005024285

PATIENT
  Age: 86 Year
  Sex: Male
  Weight: 76.2043 kg

DRUGS (2)
  1. BEXTRA [Suspect]
     Indication: MUSCULOSKELETAL STIFFNESS
  2. ANTIHYPERTENSIVES (ANTIHYPERTENSIVES) [Concomitant]

REACTIONS (3)
  - GALLBLADDER DISORDER [None]
  - NAUSEA [None]
  - VOMITING [None]
